FAERS Safety Report 4447771-6 (Version None)
Quarter: 2004Q3

REPORT INFORMATION
  Report Type: 
  Country: None (occurrence: None)
  Receive Date: 20040913
  Receipt Date: 20040907
  Transmission Date: 20050211
  Serious: Yes (Hospitalization)
  Sender: FDA-Public Use
  Company Number: 200413310FR

PATIENT
  Age: 23 Year
  Sex: Male
  Weight: 80 kg

DRUGS (1)
  1. LOVENOX [Suspect]
     Indication: THROMBOSIS PROPHYLAXIS
     Route: 058
     Dates: start: 20040225, end: 20040322

REACTIONS (4)
  - ASCITES [None]
  - DISEASE RECURRENCE [None]
  - PANCREATITIS ACUTE [None]
  - TOXICOLOGIC TEST ABNORMAL [None]
